FAERS Safety Report 14336689 (Version 3)
Quarter: 2018Q1

REPORT INFORMATION
  Report Type: Report from Study
  Country: BR (occurrence: BR)
  Receive Date: 20171229
  Receipt Date: 20180116
  Transmission Date: 20180509
  Serious: Yes (Hospitalization)
  Sender: FDA-Public Use
  Company Number: PHHY2017BR090047

PATIENT
  Sex: Female
  Weight: 59 kg

DRUGS (1)
  1. SANDOSTATIN LAR DEPOT [Suspect]
     Active Substance: OCTREOTIDE ACETATE
     Indication: NEUROENDOCRINE TUMOUR
     Dosage: 30 MG, QMO
     Route: 030
     Dates: start: 20170307

REACTIONS (21)
  - Insomnia [Recovering/Resolving]
  - Malignant neoplasm progression [Recovering/Resolving]
  - Hypersensitivity [Recovered/Resolved]
  - Vomiting [Recovered/Resolved]
  - Nausea [Recovering/Resolving]
  - Malaise [Recovered/Resolved]
  - Pain [Recovered/Resolved]
  - Feeding disorder [Recovering/Resolving]
  - Depressed mood [Recovering/Resolving]
  - Abdominal pain [Recovering/Resolving]
  - Pyrexia [Recovered/Resolved]
  - Metastases to liver [Recovering/Resolving]
  - Fatigue [Recovering/Resolving]
  - Feeding disorder [Recovered/Resolved]
  - Back pain [Recovering/Resolving]
  - Pyrexia [Recovering/Resolving]
  - Weight decreased [Recovered/Resolved]
  - Malaise [Recovering/Resolving]
  - Hypersensitivity [Recovering/Resolving]
  - Vomiting [Recovering/Resolving]
  - Needle issue [Unknown]
